FAERS Safety Report 24403325 (Version 1)
Quarter: 2024Q4

REPORT INFORMATION
  Report Type: Report from Study
  Country: IT (occurrence: IT)
  Receive Date: 20241007
  Receipt Date: 20241007
  Transmission Date: 20250115
  Serious: No
  Sender: ROCHE
  Company Number: IT-ROCHE-3352841

PATIENT
  Age: 67 Year
  Sex: Female

DRUGS (3)
  1. OBINUTUZUMAB [Suspect]
     Active Substance: OBINUTUZUMAB
     Indication: Product used for unknown indication
     Route: 042
     Dates: start: 20230419
  2. GLOFITAMAB [Suspect]
     Active Substance: GLOFITAMAB
     Indication: Skin disorder
     Route: 065
     Dates: start: 20230426
  3. GLOFITAMAB [Suspect]
     Active Substance: GLOFITAMAB
     Route: 065
     Dates: start: 20231108

REACTIONS (2)
  - Ill-defined disorder [Unknown]
  - Post-acute COVID-19 syndrome [Recovered/Resolved]
